FAERS Safety Report 14800801 (Version 1)
Quarter: 2020Q3

REPORT INFORMATION
  Report Type: Report from Study
  Country: DE (occurrence: DE)
  Receive Date: 20180424
  Receipt Date: 20180424
  Transmission Date: 20201104
  Serious: Yes (Hospitalization)
  Sender: FDA-Public Use
  Company Number: DE-JNJFOC-20180421303

PATIENT
  Age: 76 Year
  Sex: Female
  Weight: 70.1 kg

DRUGS (28)
  1. LENALIDOMIDE [Suspect]
     Active Substance: LENALIDOMIDE
     Indication: PLASMA CELL MYELOMA
     Route: 042
     Dates: start: 20160405
  2. MACROGOL [Concomitant]
     Active Substance: POLYETHYLENE GLYCOLS
     Indication: CONSTIPATION
     Route: 048
     Dates: start: 20160524
  3. ATORVASTATIN [Concomitant]
     Active Substance: ATORVASTATIN
     Indication: CORONARY ARTERY DISEASE
     Route: 048
     Dates: start: 20171014
  4. DARATUMUMAB [Suspect]
     Active Substance: DARATUMUMAB
     Route: 042
  5. MEBEVERINE [Concomitant]
     Active Substance: MEBEVERINE
     Indication: IRRITABLE BOWEL SYNDROME
     Route: 048
     Dates: start: 20160726
  6. MEBEVERINE [Concomitant]
     Active Substance: MEBEVERINE
     Indication: ABDOMINAL PAIN
     Route: 048
     Dates: start: 20160726
  7. ZOLEDRONIC ACID [Concomitant]
     Active Substance: ZOLEDRONIC ACID
     Indication: PROPHYLAXIS
     Route: 058
     Dates: start: 20160517
  8. DEXAMETHASONE. [Concomitant]
     Active Substance: DEXAMETHASONE
     Indication: PLASMA CELL MYELOMA
     Route: 042
     Dates: start: 20160405
  9. DEXAMETHASONE. [Concomitant]
     Active Substance: DEXAMETHASONE
     Indication: PLASMA CELL MYELOMA
     Route: 048
     Dates: start: 20160405
  10. NOVAMINSULFON [Concomitant]
     Active Substance: METAMIZOLE
     Indication: BONE PAIN
     Route: 048
     Dates: start: 201603
  11. CANDESARTAN. [Concomitant]
     Active Substance: CANDESARTAN
     Indication: CORONARY ARTERY DISEASE
     Route: 048
     Dates: start: 20171014
  12. DARATUMUMAB [Suspect]
     Active Substance: DARATUMUMAB
     Indication: PLASMA CELL MYELOMA
     Route: 042
     Dates: start: 20160405
  13. PANTOPRAZOLE [Concomitant]
     Active Substance: PANTOPRAZOLE
     Indication: GASTROINTESTINAL DISORDER THERAPY
     Route: 048
     Dates: start: 20160405
  14. STILNOX [Concomitant]
     Active Substance: ZOLPIDEM TARTRATE
     Indication: SLEEP DISORDER THERAPY
     Route: 048
     Dates: start: 20160503
  15. MONURIL [Concomitant]
     Active Substance: FOSFOMYCIN TROMETHAMINE
     Indication: URINARY TRACT INFECTION
     Route: 048
     Dates: start: 20160906
  16. IBUPROFEN. [Concomitant]
     Active Substance: IBUPROFEN
     Indication: BONE PAIN
     Route: 048
     Dates: start: 20161201
  17. MILGAMMA [BENFOTIAMINE;CYANOCOBALAMIN] [Concomitant]
     Active Substance: BENFOTIAMINE\CYANOCOBALAMIN
     Indication: PERIPHERAL SENSORY NEUROPATHY
     Route: 048
     Dates: start: 20170801
  18. ARANESP [Concomitant]
     Active Substance: DARBEPOETIN ALFA
     Indication: ANAEMIA
     Route: 058
     Dates: start: 20160412
  19. ASPIRIN. [Concomitant]
     Active Substance: ASPIRIN
     Indication: THROMBOSIS PROPHYLAXIS
     Route: 048
     Dates: start: 20160712
  20. MAGNESIUM [Concomitant]
     Active Substance: MAGNESIUM
     Indication: PERIPHERAL SENSORY NEUROPATHY
     Route: 048
     Dates: start: 20160916
  21. BISOPROLOL [Concomitant]
     Active Substance: BISOPROLOL
     Indication: CORONARY ARTERY DISEASE
     Route: 048
     Dates: start: 20171014
  22. ACICLOVIR [Concomitant]
     Active Substance: ACYCLOVIR
     Indication: ANTIVIRAL PROPHYLAXIS
     Route: 048
     Dates: start: 20160517
  23. RESOLOR [Concomitant]
     Active Substance: PRUCALOPRIDE SUCCINATE
     Indication: CONSTIPATION
     Route: 048
     Dates: start: 201703
  24. BISOPROLOL [Concomitant]
     Active Substance: BISOPROLOL
     Indication: HYPERTENSION
     Route: 048
     Dates: start: 201512, end: 20160418
  25. BISOPROLOL [Concomitant]
     Active Substance: BISOPROLOL
     Indication: CORONARY ARTERY DISEASE
     Route: 048
     Dates: start: 201512, end: 20160418
  26. BISOPROLOL [Concomitant]
     Active Substance: BISOPROLOL
     Indication: HYPERTENSION
     Route: 048
     Dates: start: 20171014
  27. HYDROXYZINE [Concomitant]
     Active Substance: HYDROXYZINE HYDROCHLORIDE
     Indication: FEAR
     Route: 048
     Dates: start: 201603
  28. CIPROBAY (CIPROFLOXACIN) [Concomitant]
     Active Substance: CIPROFLOXACIN
     Indication: INFECTION PROPHYLAXIS
     Route: 048
     Dates: start: 20160405

REACTIONS (1)
  - Retinal artery occlusion [Recovered/Resolved]

NARRATIVE: CASE EVENT DATE: 20180415
